FAERS Safety Report 13485756 (Version 1)
Quarter: 2017Q2

REPORT INFORMATION
  Report Type: Not Available
  Country: None (occurrence: US)
  Receive Date: 20170426
  Receipt Date: 20170426
  Transmission Date: 20170830
  Serious: No
  Sender: FDA-Public Use
  Company Number: US-AKORN-55185

PATIENT
  Age: 79 Year
  Sex: Female

DRUGS (1)
  1. AZASITE [Suspect]
     Active Substance: AZITHROMYCIN MONOHYDRATE

REACTIONS (3)
  - Abdominal pain upper [Recovered/Resolved]
  - Rash [None]
  - Malaise [None]

NARRATIVE: CASE EVENT DATE: 20170410
